FAERS Safety Report 12441662 (Version 1)
Quarter: 2016Q2

REPORT INFORMATION
  Report Type: Spontaneous
  Country: US (occurrence: US)
  Receive Date: 20160607
  Receipt Date: 20160607
  Transmission Date: 20160815
  Serious: Yes (Death)
  Sender: FDA-Public Use
  Company Number: US-LUPIN PHARMACEUTICALS INC.-E2B_00005536

PATIENT
  Age: 66 Year
  Sex: Male
  Weight: 83.08 kg

DRUGS (1)
  1. VANCOMYCIN HYDROCHLORIDE CAPSULES USP, 250MG. [Suspect]
     Active Substance: VANCOMYCIN HYDROCHLORIDE
     Indication: POSTOPERATIVE CARE
     Dosage: 1000 MG
     Route: 048
     Dates: start: 20160109

REACTIONS (1)
  - Myocardial infarction [Fatal]

NARRATIVE: CASE EVENT DATE: 201601
